FAERS Safety Report 5460901-2 (Version None)
Quarter: 2007Q3

REPORT INFORMATION
  Report Type: 
  Country: None (occurrence: None)
  Receive Date: 20070827
  Receipt Date: 20061003
  Transmission Date: 20080115
  Serious: Yes (Other)
  Sender: FDA-Public Use
  Company Number: 2006119842

PATIENT
  Sex: Male

DRUGS (2)
  1. VFEND [Suspect]
  2. PROTONIX [Suspect]
     Dosage: (40 MG)

REACTIONS (1)
  - RENAL FAILURE [None]
